FAERS Safety Report 13241715 (Version 1)
Quarter: 2017Q1

REPORT INFORMATION
  Report Type: Spontaneous
  Country: CN (occurrence: CN)
  Receive Date: 20170216
  Receipt Date: 20170216
  Transmission Date: 20170428
  Serious: Yes (Other)
  Sender: FDA-Public Use
  Company Number: CN-FRESENIUS KABI-FK201701162

PATIENT
  Age: 48 Year
  Sex: Male

DRUGS (2)
  1. INTRALIPID [Suspect]
     Active Substance: EGG PHOSPHOLIPIDS\GLYCERIN\SOYBEAN OIL
     Indication: PARAPLEGIA
     Route: 041
     Dates: start: 20160626, end: 20160626
  2. FAT-SOLUBLE VITAMIN INJECTION (II) [Suspect]
     Active Substance: VITAMINS
     Indication: PARAPLEGIA
     Route: 041
     Dates: start: 20160626, end: 20160626

REACTIONS (2)
  - Dyspnoea [Recovered/Resolved]
  - Chest discomfort [Recovered/Resolved]

NARRATIVE: CASE EVENT DATE: 20160626
